FAERS Safety Report 14343910 (Version 1)
Quarter: 2018Q1

REPORT INFORMATION
  Report Type: Report from Study
  Country: US (occurrence: US)
  Receive Date: 20180102
  Receipt Date: 20180102
  Transmission Date: 20180509
  Serious: Yes (Death, Hospitalization)
  Sender: FDA-Public Use
  Company Number: US-ACTELION-A-NJ2017-148421

PATIENT
  Age: 66 Year
  Sex: Female
  Weight: 53.97 kg

DRUGS (4)
  1. TRACLEER [Suspect]
     Active Substance: BOSENTAN
     Indication: PULMONARY ARTERIAL HYPERTENSION
     Dosage: 125 MG, BID
     Route: 048
     Dates: start: 20060308
  2. REMODULIN [Concomitant]
     Active Substance: TREPROSTINIL
  3. REVATIO [Concomitant]
     Active Substance: SILDENAFIL CITRATE
  4. COUMADIN [Concomitant]
     Active Substance: WARFARIN SODIUM

REACTIONS (8)
  - Urinary tract infection [Unknown]
  - Pulmonary hypertension [Unknown]
  - Fluid overload [Unknown]
  - Nasopharyngitis [Unknown]
  - Dyspnoea [Unknown]
  - Death [Fatal]
  - Nausea [Unknown]
  - Peripheral swelling [Unknown]
